FAERS Safety Report 16065868 (Version 2)
Quarter: 2019Q1

REPORT INFORMATION
  Report Type: Spontaneous
  Country: CN (occurrence: CN)
  Receive Date: 20190313
  Receipt Date: 20190327
  Transmission Date: 20190418
  Serious: Yes (Death, Other)
  Sender: FDA-Public Use
  Company Number: CN-ROCHE-2275059

PATIENT
  Age: 56 Year
  Sex: Male

DRUGS (16)
  1. BASILIXIMAB [Concomitant]
     Active Substance: BASILIXIMAB
     Dosage: INDUCTION THERAPY.
     Route: 065
  2. AMINOPHENAZONE [Concomitant]
     Active Substance: AMINOPHENAZONE
  3. CEFOPERAZONE [Concomitant]
     Active Substance: CEFOPERAZONE
  4. BARBITAL [Concomitant]
     Active Substance: BARBITAL
  5. CEFTRIAXONE. [Concomitant]
     Active Substance: CEFTRIAXONE
  6. LINEZOLID. [Concomitant]
     Active Substance: LINEZOLID
  7. CELLCEPT [Suspect]
     Active Substance: MYCOPHENOLATE MOFETIL\MYCOPHENOLATE MOFETIL HYDROCHLORIDE
     Indication: IMMUNOSUPPRESSION
     Route: 065
  8. CELLCEPT [Suspect]
     Active Substance: MYCOPHENOLATE MOFETIL\MYCOPHENOLATE MOFETIL HYDROCHLORIDE
     Indication: LIVER TRANSPLANT
  9. METHYLPREDNISOLONE. [Concomitant]
     Active Substance: METHYLPREDNISOLONE
     Indication: IMMUNOSUPPRESSION
     Route: 042
  10. METHYLPREDNISOLONE. [Concomitant]
     Active Substance: METHYLPREDNISOLONE
     Indication: LIVER TRANSPLANT
  11. TACROLIMUS. [Concomitant]
     Active Substance: TACROLIMUS
     Indication: IMMUNOSUPPRESSION
  12. ETANERCEPT OR PLACEBO [Concomitant]
     Active Substance: ETANERCEPT
  13. TACROLIMUS. [Concomitant]
     Active Substance: TACROLIMUS
     Indication: LIVER TRANSPLANT
  14. ORNIDAZOLE [Concomitant]
     Active Substance: ORNIDAZOLE
  15. TIENAM [Concomitant]
     Active Substance: CILASTATIN SODIUM\IMIPENEM
  16. VORICONAZOLE. [Concomitant]
     Active Substance: VORICONAZOLE

REACTIONS (2)
  - Graft versus host disease [Fatal]
  - Respiratory failure [Unknown]
